FAERS Safety Report 9768423 (Version 1)
Quarter: 2013Q4

REPORT INFORMATION
  Report Type: Spontaneous
  Country: FI (occurrence: FI)
  Receive Date: 20131217
  Receipt Date: 20131217
  Transmission Date: 20140711
  Serious: Yes (Hospitalization)
  Sender: FDA-Public Use
  Company Number: FI-B.I. PHARMACEUTICALS,INC./RIDGEFIELD-2013-BI-41746SF

PATIENT
  Age: 62 Year
  Sex: Male

DRUGS (9)
  1. PRADAXA [Suspect]
     Indication: ATRIAL FIBRILLATION
     Dosage: 220 MG
     Dates: start: 2010
  2. PRADAXA [Suspect]
     Dosage: 300 MG
  3. LIPITOR [Concomitant]
     Dosage: 80 MG
  4. JANUMET [Concomitant]
     Dosage: DOSE PER APPLICATION AND DAILY DOSE: 50/1000MG
  5. RENITEC [Concomitant]
     Dosage: 20 MG
  6. EMCONCOR [Concomitant]
     Dosage: 20 MG
  7. DILZEM [Concomitant]
     Dosage: 240 MG
  8. DIGOXIN [Concomitant]
     Dosage: 0.25 MG
  9. PHYSIOTENS [Concomitant]
     Dosage: 0.4 MG

REACTIONS (2)
  - Pain in extremity [Recovered/Resolved]
  - Thrombosis [Recovered/Resolved]
